FAERS Safety Report 5090348-2 (Version None)
Quarter: 2006Q3

REPORT INFORMATION
  Report Type: 
  Country: None (occurrence: None)
  Receive Date: 20060828
  Receipt Date: 20060724
  Transmission Date: 20061208
  Serious: No
  Sender: FDA-Public Use
  Company Number: US-GLAXOSMITHKLINE-A0613575A

PATIENT
  Age: 36 Year
  Sex: Female

DRUGS (1)
  1. WELLBUTRIN XL [Suspect]
     Indication: DRUG USE FOR UNKNOWN INDICATION
     Dosage: 150MG UNKNOWN
     Route: 048

REACTIONS (5)
  - ARTIFICIAL MENOPAUSE [None]
  - HEADACHE [None]
  - HOT FLUSH [None]
  - HYSTERECTOMY [None]
  - THERAPEUTIC RESPONSE UNEXPECTED [None]
